FAERS Safety Report 23984590 (Version 1)
Quarter: 2024Q2

REPORT INFORMATION
  Report Type: Report from Study
  Country: CO (occurrence: CO)
  Receive Date: 20240618
  Receipt Date: 20240618
  Transmission Date: 20240716
  Serious: Yes (Hospitalization)
  Sender: FDA-Public Use
  Company Number: CO-JNJFOC-20240351180

PATIENT
  Age: 34 Year
  Sex: Male
  Weight: 60 kg

DRUGS (5)
  1. INVEGA SUSTENNA [Suspect]
     Active Substance: PALIPERIDONE PALMITATE
     Indication: Schizophrenia
     Dosage: LAST APPLICATION: 06-MAY-2024
     Route: 030
     Dates: start: 20220420
  2. INVEGA SUSTENNA [Suspect]
     Active Substance: PALIPERIDONE PALMITATE
  3. INVEGA SUSTENNA [Suspect]
     Active Substance: PALIPERIDONE PALMITATE
  4. VALPROIC ACID [Concomitant]
     Active Substance: VALPROIC ACID
  5. CLOZAPINE [Concomitant]
     Active Substance: CLOZAPINE

REACTIONS (9)
  - Anxiety [Recovering/Resolving]
  - Underweight [Recovering/Resolving]
  - Inappropriate schedule of product administration [Not Recovered/Not Resolved]
  - Hospitalisation [Not Recovered/Not Resolved]
  - Depression [Unknown]
  - Fall [Not Recovered/Not Resolved]
  - Incoherent [Unknown]
  - Fatigue [Unknown]
  - Obsessive thoughts [Unknown]

NARRATIVE: CASE EVENT DATE: 20240301
